FAERS Safety Report 15336247 (Version 1)
Quarter: 2018Q3

REPORT INFORMATION
  Report Type: Spontaneous
  Country: US (occurrence: US)
  Receive Date: 20180827
  Receipt Date: 20180827
  Transmission Date: 20181010
  Serious: Yes (Disabling)
  Sender: FDA-Public Use
  Company Number: None

PATIENT
  Age: 22 Year
  Sex: Male
  Weight: 54.9 kg

DRUGS (17)
  1. NAC [Concomitant]
  2. ZINC. [Concomitant]
     Active Substance: ZINC
  3. VITAMIN C [Concomitant]
     Active Substance: ASCORBIC ACID
  4. ASTAXANTHIN [Concomitant]
  5. FISH OIL [Concomitant]
     Active Substance: FISH OIL
  6. ESCITALOPRAM [Suspect]
     Active Substance: ESCITALOPRAM OXALATE
     Indication: DEPRESSION
     Dosage: ?          QUANTITY:1 TABLET(S);?
     Route: 048
     Dates: start: 20180124
  7. PHENIBUT [Concomitant]
     Active Substance: DIETARY SUPPLEMENT
  8. COPPER [Concomitant]
     Active Substance: COPPER
  9. MAGNESIUM [Concomitant]
     Active Substance: MAGNESIUM
  10. VYVANSE [Suspect]
     Active Substance: LISDEXAMFETAMINE DIMESYLATE
     Indication: ATTENTION DEFICIT/HYPERACTIVITY DISORDER
     Dosage: ?          QUANTITY:1 CAPSULE(S);?
     Route: 048
     Dates: start: 20180624
  11. ESCITALOPRAM [Suspect]
     Active Substance: ESCITALOPRAM OXALATE
     Indication: ANXIETY
     Dosage: ?          QUANTITY:1 TABLET(S);?
     Route: 048
     Dates: start: 20180124
  12. VITAMIN K2 MK07 [Concomitant]
  13. ESCITALOPRAM [Suspect]
     Active Substance: ESCITALOPRAM OXALATE
     Indication: OBSESSIVE-COMPULSIVE DISORDER
     Dosage: ?          QUANTITY:1 TABLET(S);?
     Route: 048
     Dates: start: 20180124
  14. SPIRULINA [Concomitant]
     Active Substance: SPIRULINA
  15. CALCIUM [Concomitant]
     Active Substance: CALCIUM
  16. VITAMIN D3 [Concomitant]
     Active Substance: CHOLECALCIFEROL
  17. AGED GARLIC EXTRACT [Concomitant]

REACTIONS (4)
  - Intentional overdose [None]
  - Dry mouth [None]
  - Breath odour [None]
  - Unhealthy diet [None]

NARRATIVE: CASE EVENT DATE: 20180820
